FAERS Safety Report 14118837 (Version 1)
Quarter: 2017Q4

REPORT INFORMATION
  Report Type: Spontaneous
  Country: US (occurrence: US)
  Receive Date: 20171024
  Receipt Date: 20171024
  Transmission Date: 20180321
  Serious: No
  Sender: FDA-Public Use
  Company Number: US-CELGENEUS-USA-20171005986

PATIENT
  Age: 34 Year
  Sex: Female

DRUGS (4)
  1. OMEPRAZOLE. [Concomitant]
     Active Substance: OMEPRAZOLE
     Indication: GASTROOESOPHAGEAL REFLUX DISEASE
     Dosage: 20 MILLIGRAM
     Route: 048
  2. VITAMIN C [Concomitant]
     Active Substance: ASCORBIC ACID
     Indication: VITAMIN SUPPLEMENTATION
     Route: 065
  3. PRENATAL OTC [Concomitant]
     Indication: VITAMIN SUPPLEMENTATION
     Route: 065
  4. OTEZLA [Suspect]
     Active Substance: APREMILAST
     Indication: PSORIATIC ARTHROPATHY
     Dosage: MORE THAN 20 MILLIGRAM
     Route: 048
     Dates: start: 20170926

REACTIONS (2)
  - Feeding disorder [Recovered/Resolved with Sequelae]
  - Nausea [Recovering/Resolving]

NARRATIVE: CASE EVENT DATE: 20170927
